FAERS Safety Report 13790554 (Version 2)
Quarter: 2017Q4

REPORT INFORMATION
  Report Type: Report from Study
  Country: DE (occurrence: DE)
  Receive Date: 20170725
  Receipt Date: 20171103
  Transmission Date: 20180320
  Serious: Yes (Death)
  Sender: FDA-Public Use
  Company Number: DE-BAYER-2017-139769

PATIENT
  Age: 67 Year
  Sex: Male
  Weight: 82 kg

DRUGS (13)
  1. XOFIGO [Suspect]
     Active Substance: RADIUM RA-223 DICHLORIDE
     Dosage: 4 MBQ, ONCE
     Route: 042
     Dates: start: 20170607, end: 20170607
  2. DEXAMETHASON [Concomitant]
     Active Substance: DEXAMETHASONE
     Dosage: UNK
     Dates: start: 201306
  3. L-THYROXINE [Concomitant]
     Active Substance: LEVOTHYROXINE
     Dosage: 100 ?G, QD
     Route: 048
     Dates: start: 2003
  4. PANTOZOL [Concomitant]
     Active Substance: PANTOPRAZOLE SODIUM
     Dosage: DAILY DOSE 40 MG
     Dates: start: 2013
  5. EDOXABAN [Concomitant]
     Active Substance: EDOXABAN TOSYLATE
     Dosage: DAILY DOSE 30 MG
     Dates: start: 20170503, end: 20170529
  6. ASPIRIN. [Concomitant]
     Active Substance: ASPIRIN
     Dosage: DAILY DOSE 100 MG
     Route: 048
     Dates: start: 2012
  7. XOFIGO [Suspect]
     Active Substance: RADIUM RA-223 DICHLORIDE
     Dosage: 4.38 MBQ, ONCE
     Route: 042
     Dates: start: 20170215, end: 20170215
  8. XOFIGO [Suspect]
     Active Substance: RADIUM RA-223 DICHLORIDE
     Dosage: 4.3 MBQ, ONCE
     Route: 042
     Dates: start: 20170315, end: 20170315
  9. XOFIGO [Suspect]
     Active Substance: RADIUM RA-223 DICHLORIDE
     Dosage: 4.22 KBQ, ONCE
     Route: 042
     Dates: start: 20170412, end: 20170412
  10. BISOPROLOL [Concomitant]
     Active Substance: BISOPROLOL
     Dosage: DAILY DOSE 5 MG
     Dates: start: 2011
  11. HCT [Concomitant]
     Active Substance: HYDROCHLOROTHIAZIDE
     Dosage: DAILY DOSE 12.5 MG
     Dates: start: 2008
  12. XOFIGO [Suspect]
     Active Substance: RADIUM RA-223 DICHLORIDE
     Dosage: 4.1 MBQ, ONCE
     Route: 042
     Dates: start: 20170510, end: 20170510
  13. CANDESARTAN. [Concomitant]
     Active Substance: CANDESARTAN
     Dosage: UNK
     Dates: start: 2013

REACTIONS (1)
  - Pancytopenia [Fatal]

NARRATIVE: CASE EVENT DATE: 20170707
